FAERS Safety Report 4561418-X (Version None)
Quarter: 2005Q1

REPORT INFORMATION
  Report Type: 
  Country: None (occurrence: None)
  Receive Date: 20050121
  Receipt Date: 20041230
  Transmission Date: 20050727
  Serious: Yes (Other)
  Sender: FDA-Public Use
  Company Number: USA041287196

PATIENT
  Age: 75 Year
  Sex: Male
  Weight: 118 kg

DRUGS (1)
  1. HUMULIN N [Suspect]
     Dates: start: 19900101

REACTIONS (3)
  - FOOD ALLERGY [None]
  - LOSS OF CONSCIOUSNESS [None]
  - VOMITING [None]
